FAERS Safety Report 21406485 (Version 1)
Quarter: 2022Q4

REPORT INFORMATION
  Report Type: Spontaneous
  Country: US (occurrence: US)
  Receive Date: 20221004
  Receipt Date: 20221004
  Transmission Date: 20230112
  Serious: No
  Sender: FDA-Public Use
  Company Number: US-PFIZER INC-202201197568

PATIENT
  Sex: Female

DRUGS (2)
  1. PAXLOVID [Suspect]
     Active Substance: NIRMATRELVIR\RITONAVIR
     Indication: COVID-19 treatment
     Dosage: UNK
  2. WARFARIN [Suspect]
     Active Substance: WARFARIN
     Dosage: UNK

REACTIONS (4)
  - Toothache [Unknown]
  - Hypoaesthesia teeth [Unknown]
  - Diarrhoea [Unknown]
  - Malaise [Unknown]
